FAERS Safety Report 16473531 (Version 1)
Quarter: 2019Q2

REPORT INFORMATION
  Report Type: Spontaneous
  Country: US (occurrence: US)
  Receive Date: 20190625
  Receipt Date: 20190625
  Transmission Date: 20190711
  Serious: Yes (Other)
  Sender: FDA-Public Use
  Company Number: US-FRESENIUS KABI-FK201906926

PATIENT
  Age: 59 Year
  Sex: Male
  Weight: 78.6 kg

DRUGS (3)
  1. VANCOMYCIN (MANUFACTURER UNKNOWN) [Suspect]
     Active Substance: VANCOMYCIN
     Indication: ARTHRITIS INFECTIVE
     Dosage: 1,25 G
     Route: 042
  2. VANCOMYCIN (MANUFACTURER UNKNOWN) [Suspect]
     Active Substance: VANCOMYCIN
     Dosage: 1,5 G
     Route: 042
  3. PIRACETAM [Suspect]
     Active Substance: PIRACETAM
     Indication: ARTHRITIS INFECTIVE
     Dosage: COMPRISED OF 1 G OF VANCOMYCIN AND 2.4 G OF TOBRAMYCIN. A MIX OF 3-MM AND 4.8-MM BEADS WAS PACKED IN
     Route: 050

REACTIONS (1)
  - Renal tubular necrosis [Recovered/Resolved]
